FAERS Safety Report 23254412 (Version 2)
Quarter: 2024Q4

REPORT INFORMATION
  Report Type: Report from Study
  Country: CH (occurrence: CH)
  Receive Date: 20231202
  Receipt Date: 20241029
  Transmission Date: 20250115
  Serious: Yes (Hospitalization)
  Sender: BAYER HEALTHCARE PHARMACEUTICALS INC.
  Company Number: CH-BAYER-2021-184814

PATIENT
  Sex: Male
  Weight: 6 kg

DRUGS (7)
  1. VITRAKVI [Suspect]
     Active Substance: LAROTRECTINIB
     Indication: Congenital fibrosarcoma
     Dosage: 30 MG, BID
     Route: 048
     Dates: start: 20210514, end: 20210705
  2. VITRAKVI [Suspect]
     Active Substance: LAROTRECTINIB
     Indication: Congenital fibrosarcoma
     Dosage: 30 MG, BID
     Route: 048
     Dates: start: 20210709, end: 20210721
  3. VITRAKVI [Suspect]
     Active Substance: LAROTRECTINIB
     Indication: Congenital fibrosarcoma
     Dosage: 20 MG, BID
     Route: 048
     Dates: start: 20210727, end: 20211015
  4. CLEMASTINE FUMARATE [Concomitant]
     Active Substance: CLEMASTINE FUMARATE
     Dosage: UNK UNK, PRN
     Dates: start: 20210514, end: 20210521
  5. ELOTRANS [GLUCOSE;POTASSIUM CHLORIDE;SODIUM BICARBONATE;SODIUM CHL [Concomitant]
     Indication: Vomiting
     Dosage: UNK
     Dates: start: 20210705, end: 20210707
  6. FLUTICASONE FUROATE [Concomitant]
     Active Substance: FLUTICASONE FUROATE
     Dosage: UNK
     Dates: start: 20230503
  7. VITAMIN D3 [Concomitant]
     Active Substance: CHOLECALCIFEROL
     Dosage: UNK
     Dates: start: 20230531

REACTIONS (4)
  - Nausea [Recovered/Resolved with Sequelae]
  - Vomiting [Recovered/Resolved]
  - Vomiting [Recovered/Resolved]
  - Fluid intake reduced [Recovered/Resolved]

NARRATIVE: CASE EVENT DATE: 20210520
